FAERS Safety Report 15377650 (Version 1)
Quarter: 2018Q3

REPORT INFORMATION
  Report Type: Spontaneous
  Country: US (occurrence: US)
  Receive Date: 20180913
  Receipt Date: 20180913
  Transmission Date: 20181010
  Serious: Yes (Other)
  Sender: FDA-Public Use
  Company Number: US-BAYER-2018-168852

PATIENT
  Age: 49 Year
  Sex: Male
  Weight: 83.9 kg

DRUGS (1)
  1. BAYER LOW DOSE [Suspect]
     Active Substance: ASPIRIN
     Dosage: UNK UNK, QD

REACTIONS (3)
  - Myocardial infarction [Unknown]
  - Myocardial infarction [Unknown]
  - Incorrect drug administration duration [None]

NARRATIVE: CASE EVENT DATE: 20100221
